FAERS Safety Report 16371071 (Version 1)
Quarter: 2019Q2

REPORT INFORMATION
  Report Type: Report from Study
  Country: CO (occurrence: CO)
  Receive Date: 20190530
  Receipt Date: 20190530
  Transmission Date: 20190711
  Serious: No
  Sender: FDA-Public Use
  Company Number: CO-JNJFOC-20190525063

PATIENT

DRUGS (1)
  1. STELARA [Suspect]
     Active Substance: USTEKINUMAB
     Indication: PSORIASIS
     Route: 058
     Dates: start: 20120618, end: 20170223

REACTIONS (3)
  - Hepatic steatosis [Unknown]
  - Psoriasis [Unknown]
  - Transaminases decreased [Unknown]
